FAERS Safety Report 19967596 (Version 1)
Quarter: 2021Q4

REPORT INFORMATION
  Report Type: Spontaneous
  Country: US (occurrence: US)
  Receive Date: 20211018
  Receipt Date: 20211018
  Transmission Date: 20220303
  Serious: Yes (Death)
  Sender: FDA-Public Use
  Company Number: None

PATIENT
  Age: 87 Year
  Sex: Male

DRUGS (7)
  1. VYNDAQEL [Suspect]
     Active Substance: TAFAMIDIS MEGLUMINE
     Indication: Amyloidosis
     Route: 048
     Dates: start: 20190803
  2. ALLOPURINOL [Concomitant]
     Active Substance: ALLOPURINOL
  3. BUMETANIDE [Concomitant]
     Active Substance: BUMETANIDE
  4. DIFLUNISAL [Concomitant]
     Active Substance: DIFLUNISAL
  5. POTASSIUM CHLORIDE [Concomitant]
     Active Substance: POTASSIUM CHLORIDE
  6. SOPIRONOLACT [Concomitant]
  7. TORSEMIDE [Concomitant]
     Active Substance: TORSEMIDE

REACTIONS (1)
  - Death [None]

NARRATIVE: CASE EVENT DATE: 20210929
